FAERS Safety Report 24840498 (Version 3)
Quarter: 2025Q2

REPORT INFORMATION
  Report Type: Spontaneous
  Country: JP (occurrence: JP)
  Receive Date: 20250114
  Receipt Date: 20250513
  Transmission Date: 20250717
  Serious: Yes (Other)
  Sender: PFIZER
  Company Number: JP-PFIZER INC-PV202500003125

PATIENT
  Age: 77 Year
  Sex: Female
  Weight: 37.9 kg

DRUGS (4)
  1. METHOTREXATE SODIUM [Suspect]
     Active Substance: METHOTREXATE SODIUM
     Indication: Still^s disease
     Dosage: 12 MG, WEEKLY
     Dates: start: 201805, end: 2018
  2. PREDNISOLONE [Suspect]
     Active Substance: PREDNISOLONE
     Indication: Still^s disease
  3. CYCLOSPORINE [Suspect]
     Active Substance: CYCLOSPORINE
     Indication: Still^s disease
     Dosage: 250 MG, 1X/DAY
     Dates: start: 201806, end: 2018
  4. TOCILIZUMAB [Suspect]
     Active Substance: TOCILIZUMAB
     Indication: Still^s disease
     Dosage: 162 MG, WEEKLY
     Dates: start: 201806, end: 2018

REACTIONS (2)
  - Diffuse large B-cell lymphoma [Unknown]
  - Central nervous system lymphoma [Unknown]

NARRATIVE: CASE EVENT DATE: 20180801
